FAERS Safety Report 5065347-7 (Version None)
Quarter: 2006Q3

REPORT INFORMATION
  Report Type: 
  Country: None (occurrence: None)
  Receive Date: 20060707
  Receipt Date: 20060206
  Transmission Date: 20061208
  Serious: Yes (Hospitalization)
  Sender: FDA-Public Use
  Company Number: SUS1-2006-00189

PATIENT
  Sex: Female

DRUGS (1)
  1. PENTASA [Suspect]
     Indication: COLITIS MICROSCOPIC
     Dosage: 3 G DAILY, ORAL
     Route: 048
     Dates: start: 20051025, end: 20051101

REACTIONS (1)
  - NEPHRITIS INTERSTITIAL [None]
